FAERS Safety Report 10211377 (Version 1)
Quarter: 2014Q2

REPORT INFORMATION
  Report Type: Spontaneous
  Country: GB (occurrence: None)
  Receive Date: 20140528
  Receipt Date: 20140528
  Transmission Date: 20141212
  Serious: Yes (Other)
  Sender: FDA-Public Use
  Company Number: AUR-APL-2014-06067

PATIENT
  Age: 61 Year
  Sex: Female
  Weight: 60.3 kg

DRUGS (11)
  1. SIMVASTATIN [Suspect]
     Indication: PRODUCT USED FOR UNKNOWN INDICATION
  2. FEMOSTON (ZUMESTON) [Concomitant]
  3. FLUTICASONE PROPRIONATE (FLUTICASONE PROPIONATE)? [Concomitant]
  4. KLIOVANCE (KLIOGEST) [Concomitant]
  5. MOMETASONE [Concomitant]
  6. NAPROXEN [Concomitant]
  7. PREMPAK [Concomitant]
  8. QVAR (BECLOMETASONE DIPROPIONATE) [Concomitant]
  9. SALAMOL (SALBUTAMOL) [Concomitant]
  10. SALBUTAMOL [Concomitant]
  11. TRAMADOL [Concomitant]

REACTIONS (1)
  - Weight increased [None]
